FAERS Safety Report 26122563 (Version 3)
Quarter: 2025Q4

REPORT INFORMATION
  Report Type: Report from Study
  Country: US (occurrence: None)
  Receive Date: 20251204
  Receipt Date: 20251225
  Transmission Date: 20260117
  Serious: Yes (Other)
  Sender: UCB
  Company Number: US-UCBSA-2025075033

PATIENT
  Age: 77 Year
  Weight: 68.03 kg

DRUGS (14)
  1. ROZANOLIXIZUMAB [Suspect]
     Active Substance: ROZANOLIXIZUMAB
     Indication: Myasthenia gravis
     Dosage: 560 MILLIGRAM, WEEKLY (QW)
  2. CLONIDINE [Concomitant]
     Active Substance: CLONIDINE
     Indication: Blood pressure measurement
     Dosage: 0.2 MILLIGRAM, ONE AND HALF TABLET DAILY, MANY YEARS AGO
     Route: 061
  3. LEVOTHYROXINE [Concomitant]
     Active Substance: LEVOTHYROXINE
     Indication: Thyroid disorder
     Dosage: 0.112 MILLIGRAM, ONCE DAILY (QD), MANY YEARS AGO
     Route: 061
  4. HYDROCHLOROTHIAZIDE [Concomitant]
     Active Substance: HYDROCHLOROTHIAZIDE
     Indication: Flushing
     Dosage: 25 MILLIGRAM, ONCE DAILY (QD), MANY YEARS AGO
     Route: 061
  5. PRAVASTATIN [Concomitant]
     Active Substance: PRAVASTATIN
     Indication: Blood cholesterol
     Dosage: 20 MILLIGRAM, ONCE DAILY (QD), 3 YEARS AGO
     Route: 061
  6. SERTRALINE [Concomitant]
     Active Substance: SERTRALINE HYDROCHLORIDE
     Indication: Depression
     Dosage: 100 MILLIGRAM, ONCE DAILY (QD), MANY YEARS AGO
     Route: 061
  7. PANTOPRAZOLE [Concomitant]
     Active Substance: PANTOPRAZOLE
     Indication: Gastritis
     Dosage: 40 MILLIGRAM, ONCE DAILY (QD), MANY YEARS AGO
     Route: 061
  8. ASPIRIN [Concomitant]
     Active Substance: ASPIRIN
     Indication: Product used for unknown indication
     Dosage: 80 MILLIGRAM, ONCE DAILY (QD)
     Route: 061
  9. TIZANIDINE [Concomitant]
     Active Substance: TIZANIDINE
     Indication: Arthralgia
     Dosage: 2 MILLIGRAM, ONCE DAILY (QD), MANY YEARS AGO
     Route: 061
  10. LORATADINE [Concomitant]
     Active Substance: LORATADINE
     Indication: Hypersensitivity
     Dosage: 10 MILLIGRAM, ONCE DAILY (QD), MANY YEARS AGO
     Route: 061
  11. MYCOPHENOLIC ACID [Concomitant]
     Active Substance: MYCOPHENOLIC ACID
     Indication: Myasthenia gravis
     Dosage: 500 MILLIGRAM, 2 TABLETS TWICE DAILY, MANY YEARS AGO
     Route: 061
  12. SUCRALFATE [Concomitant]
     Active Substance: SUCRALFATE
     Indication: Gastric ulcer
     Dosage: 1 GRAM, 4X/DAY (QID), MANY YEARS AGO
     Route: 061
  13. POTASSIUM CHLORIDE [Concomitant]
     Active Substance: POTASSIUM CHLORIDE
     Indication: Hypokalaemia
     Dosage: 20 MILLIGRAM, 2X/DAY (BID), MANY YEARS AGO
     Route: 061
  14. PYRIDOSTIGMINE [Concomitant]
     Active Substance: PYRIDOSTIGMINE
     Indication: Dysphagia
     Dosage: 60 MILLIGRAM, 2 TABLETS TWICE DAILY, MANY YEARS AGO
     Route: 061

REACTIONS (5)
  - Diverticulitis [Not Recovered/Not Resolved]
  - Nasopharyngitis [Recovered/Resolved]
  - Diarrhoea [Recovered/Resolved]
  - Upper respiratory tract infection [Recovered/Resolved]
  - Urinary tract infection [Recovered/Resolved]
